FAERS Safety Report 8429680-0 (Version None)
Quarter: 2012Q2

REPORT INFORMATION
  Report Type: 
  Country: None (occurrence: None)
  Receive Date: 20120524
  Receipt Date: 20120511
  Transmission Date: 20120825
  Serious: Yes (Hospitalization)
  Sender: FDA-Public Use
  Company Number: 2012PROUSA01411

PATIENT
  Age: 66 Year
  Sex: Male

DRUGS (1)
  1. PROVENGE [Suspect]
     Indication: PROSTATE CANCER METASTATIC
     Dosage: 250 ML, SINGLE, INTRAVENOUS
     Route: 042
     Dates: start: 20120426, end: 20120426

REACTIONS (5)
  - HYPERTENSION [None]
  - TACHYCARDIA [None]
  - PYREXIA [None]
  - CHILLS [None]
  - INFLUENZA LIKE ILLNESS [None]
